FAERS Safety Report 13284563 (Version 1)
Quarter: 2017Q1

REPORT INFORMATION
  Report Type: Spontaneous
  Country: RU (occurrence: RU)
  Receive Date: 20170301
  Receipt Date: 20170301
  Transmission Date: 20170428
  Serious: Yes (Hospitalization)
  Sender: FDA-Public Use
  Company Number: RU-ASTRAZENECA-2017SE22099

PATIENT
  Age: 49 Year
  Sex: Male
  Weight: 67 kg

DRUGS (4)
  1. THROMBO ASS [Concomitant]
     Active Substance: ASPIRIN
  2. BRILINTA [Suspect]
     Active Substance: TICAGRELOR
     Indication: MYOCARDIAL INFARCTION
     Route: 048
     Dates: start: 201701
  3. BISOPROLOL [Concomitant]
     Active Substance: BISOPROLOL
  4. LIPRIMAR [Concomitant]
     Active Substance: ATORVASTATIN CALCIUM

REACTIONS (1)
  - Chest pain [Recovered/Resolved]
